FAERS Safety Report 25016437 (Version 2)
Quarter: 2025Q1

REPORT INFORMATION
  Report Type: Spontaneous
  Country: IT (occurrence: IT)
  Receive Date: 20250227
  Receipt Date: 20250310
  Transmission Date: 20250409
  Serious: Yes (Death, Other)
  Sender: CELLTRION
  Company Number: IT-AMGEN-ITASP2024173180

PATIENT

DRUGS (6)
  1. BEVACIZUMAB [Suspect]
     Active Substance: BEVACIZUMAB
     Indication: Sarcoma
     Route: 065
  2. BEVACIZUMAB [Suspect]
     Active Substance: BEVACIZUMAB
     Indication: Medulloblastoma
  3. BEVACIZUMAB [Suspect]
     Active Substance: BEVACIZUMAB
     Indication: Brain sarcoma
  4. IRINOTECAN [Concomitant]
     Active Substance: IRINOTECAN
     Indication: Sarcoma
     Route: 065
  5. IRINOTECAN [Concomitant]
     Active Substance: IRINOTECAN
     Indication: Medulloblastoma
  6. IRINOTECAN [Concomitant]
     Active Substance: IRINOTECAN
     Indication: Brain sarcoma

REACTIONS (5)
  - Death [Fatal]
  - Brain sarcoma [Fatal]
  - Disease progression [Fatal]
  - Sarcoma [Unknown]
  - Off label use [Unknown]
